FAERS Safety Report 14584140 (Version 1)
Quarter: 2018Q1

REPORT INFORMATION
  Report Type: Spontaneous
  Country: US (occurrence: US)
  Receive Date: 20180228
  Receipt Date: 20180228
  Transmission Date: 20180509
  Serious: No
  Sender: FDA-Public Use
  Company Number: US-ALEXION PHARMACEUTICALS INC.-A201801816

PATIENT
  Age: 21 Year
  Sex: Female

DRUGS (1)
  1. STRENSIQ [Suspect]
     Active Substance: ASFOTASE ALFA
     Indication: HYPOPHOSPHATASIA
     Route: 065

REACTIONS (5)
  - Exercise tolerance decreased [Recovering/Resolving]
  - Lipohypertrophy [Recovering/Resolving]
  - Gait disturbance [Recovering/Resolving]
  - Bone density decreased [Recovering/Resolving]
  - Pain in extremity [Recovering/Resolving]
